FAERS Safety Report 18796195 (Version 24)
Quarter: 2024Q1

REPORT INFORMATION
  Report Type: Spontaneous
  Country: US (occurrence: US)
  Receive Date: 20210127
  Receipt Date: 20240315
  Transmission Date: 20240410
  Serious: Yes (Other)
  Sender: FDA-Public Use
  Company Number: US-PFIZER INC-2021070136

PATIENT
  Age: 68 Year
  Sex: Female
  Weight: 52.16 kg

DRUGS (19)
  1. DEPO-ESTRADIOL [Suspect]
     Active Substance: ESTRADIOL CYPIONATE
     Indication: Anxiety
     Dosage: UNK
     Dates: end: 202111
  2. DEPO-ESTRADIOL [Suspect]
     Active Substance: ESTRADIOL CYPIONATE
     Indication: Hot flush
     Dosage: 2 MG, MONTHLY
  3. DEPO-ESTRADIOL [Suspect]
     Active Substance: ESTRADIOL CYPIONATE
     Indication: Depression
     Dosage: 5 MG, MONTHLY
     Route: 030
  4. DEPO-ESTRADIOL [Suspect]
     Active Substance: ESTRADIOL CYPIONATE
     Indication: Premenstrual syndrome
     Dosage: 1.5 ML GETS SHOT INTO THE MUSCLE ON HER HIP
     Route: 030
     Dates: end: 202203
  5. DEPO-ESTRADIOL [Suspect]
     Active Substance: ESTRADIOL CYPIONATE
     Indication: Menopause
     Dosage: 5 MG (EVERY 4 WEEKS)
     Route: 030
  6. DEPO-ESTRADIOL [Suspect]
     Active Substance: ESTRADIOL CYPIONATE
     Indication: Agitation
     Dosage: 2 ML, MONTHLY
  7. DEPO-ESTRADIOL [Suspect]
     Active Substance: ESTRADIOL CYPIONATE
     Indication: Hormone replacement therapy
  8. DEPO-ESTRADIOL [Suspect]
     Active Substance: ESTRADIOL CYPIONATE
     Indication: Anger
  9. CYCLOBENZAPRINE [Concomitant]
     Active Substance: CYCLOBENZAPRINE
     Indication: Muscle spasms
     Dosage: 10 MG, 3X/DAY
     Dates: start: 20220112
  10. CYCLOBENZAPRINE [Concomitant]
     Active Substance: CYCLOBENZAPRINE
     Dosage: UNK
  11. NAPROXEN [Concomitant]
     Active Substance: NAPROXEN
     Indication: Pain
     Dosage: 500 MG, 2X/DAY
     Dates: start: 20220110
  12. NAPROXEN [Concomitant]
     Active Substance: NAPROXEN
     Indication: Arthritis
     Dosage: UNK
  13. ONDANSETRON [Concomitant]
     Active Substance: ONDANSETRON
     Indication: Nausea
     Dosage: 4 MG, AS NEEDED (QBWR)
     Dates: start: 20210208
  14. ONDANSETRON [Concomitant]
     Active Substance: ONDANSETRON
     Indication: Vomiting
  15. ROSUVASTATIN [Concomitant]
     Active Substance: ROSUVASTATIN
     Indication: Blood cholesterol increased
     Dosage: 10 MG, DAILY
     Dates: start: 20220121
  16. ZINC ACETATE [Concomitant]
     Active Substance: ZINC ACETATE
     Dosage: 25 MG, 1X/DAY
     Dates: start: 20210126
  17. ZOLPIDEM [Concomitant]
     Active Substance: ZOLPIDEM TARTRATE
     Indication: Insomnia
     Dosage: 10 MG, DAILY (QHS)
     Dates: start: 20210308
  18. ZOLPIDEM [Concomitant]
     Active Substance: ZOLPIDEM TARTRATE
     Dosage: UNK
  19. ZETIA [Concomitant]
     Active Substance: EZETIMIBE
     Indication: Hyperlipidaemia
     Dosage: UNK
     Dates: start: 20220707

REACTIONS (8)
  - Mental impairment [Unknown]
  - Weight decreased [Unknown]
  - Oropharyngeal pain [Unknown]
  - Aphonia [Unknown]
  - Illness [Unknown]
  - Hypersomnia [Unknown]
  - Pruritus [Unknown]
  - Loss of personal independence in daily activities [Unknown]
